FAERS Safety Report 18454966 (Version 1)
Quarter: 2020Q4

REPORT INFORMATION
  Report Type: Spontaneous
  Country: PK (occurrence: PK)
  Receive Date: 20201102
  Receipt Date: 20201102
  Transmission Date: 20210114
  Serious: Yes (Hospitalization, Other)
  Sender: FDA-Public Use
  Company Number: PK-ELI_LILLY_AND_COMPANY-PK202010008215

PATIENT
  Age: 48 Year
  Sex: Male

DRUGS (2)
  1. TAXOL [Concomitant]
     Active Substance: PACLITAXEL
     Indication: ADENOCARCINOMA GASTRIC
     Dosage: 60 MG/M2, CYCLICAL
     Route: 065
  2. RAMUCIRUMAB [Suspect]
     Active Substance: RAMUCIRUMAB
     Indication: ADENOCARCINOMA GASTRIC
     Dosage: 8 MG/KG, CYCLICAL
     Route: 065

REACTIONS (3)
  - Neutropenia [Unknown]
  - Failure to thrive [Unknown]
  - Malignant neoplasm progression [Unknown]
